FAERS Safety Report 12145440 (Version 1)
Quarter: 2016Q1

REPORT INFORMATION
  Report Type: Report from Study
  Country: TW (occurrence: TW)
  Receive Date: 20160304
  Receipt Date: 20160304
  Transmission Date: 20160526
  Serious: Yes (Other)
  Sender: FDA-Public Use
  Company Number: TW-JNJFOC-20160223179

PATIENT
  Age: 44 Year
  Sex: Male
  Weight: 58 kg

DRUGS (16)
  1. STELARA [Suspect]
     Active Substance: USTEKINUMAB
     Indication: ERYTHRODERMIC PSORIASIS
     Route: 058
     Dates: start: 20121115
  2. STELARA [Suspect]
     Active Substance: USTEKINUMAB
     Indication: ERYTHRODERMIC PSORIASIS
     Route: 058
     Dates: start: 20130829
  3. STELARA [Suspect]
     Active Substance: USTEKINUMAB
     Indication: ERYTHRODERMIC PSORIASIS
     Route: 058
     Dates: start: 2014
  4. FRADIOMYCIN [Concomitant]
     Dosage: TUBE
     Route: 061
  5. HYDROCORTISONE. [Concomitant]
     Active Substance: HYDROCORTISONE
     Route: 061
  6. STELARA [Suspect]
     Active Substance: USTEKINUMAB
     Indication: ERYTHRODERMIC PSORIASIS
     Dosage: APPROXIMATE TOTAL NUMBERS OF INJECTIONS RECEIVED 8
     Route: 058
     Dates: start: 20121213, end: 20140828
  7. STELARA [Suspect]
     Active Substance: USTEKINUMAB
     Indication: ERYTHRODERMIC PSORIASIS
     Route: 058
     Dates: start: 20130606
  8. POLYTAR EMOLLIENT [Concomitant]
     Dosage: 1 PC
     Route: 061
  9. FLUOCINOLONE [Concomitant]
     Active Substance: FLUOCINOLONE
     Dosage: TUBE
     Route: 061
  10. STELARA [Suspect]
     Active Substance: USTEKINUMAB
     Indication: ERYTHRODERMIC PSORIASIS
     Route: 058
     Dates: start: 20131121
  11. NEOSTRATA [Concomitant]
     Route: 065
  12. STELARA [Suspect]
     Active Substance: USTEKINUMAB
     Indication: ERYTHRODERMIC PSORIASIS
     Route: 058
     Dates: start: 20130314
  13. DAIVOBET [Concomitant]
     Active Substance: BETAMETHASONE DIPROPIONATE\CALCIPOTRIENE
     Dosage: CALCIPOTRIOL 50MCG BETAMETHASONE 0.5MG/GM 4PC
     Route: 061
  14. POLYTAR EMOLLIENT [Concomitant]
     Dosage: 1 PC
     Route: 061
  15. XAMIOL [Concomitant]
     Active Substance: BETAMETHASONE DIPROPIONATE\CALCIPOTRIENE HYDRATE
     Dosage: CALCIPOTRIOL 50MCG BETAMETHASONE 0.5MG/GM 1PC
     Route: 061
  16. FEXOFENADINE [Concomitant]
     Active Substance: FEXOFENADINE\FEXOFENADINE HYDROCHLORIDE
     Dosage: TUBE
     Route: 048

REACTIONS (3)
  - Product use issue [Unknown]
  - Off label use [Unknown]
  - Latent tuberculosis [Recovered/Resolved]

NARRATIVE: CASE EVENT DATE: 20121115
